FAERS Safety Report 9485336 (Version 1)
Quarter: 2013Q3

REPORT INFORMATION
  Report Type: Spontaneous
  Country: US (occurrence: US)
  Receive Date: 20130828
  Receipt Date: 20130828
  Transmission Date: 20140515
  Serious: Yes (Hospitalization, Other)
  Sender: FDA-Public Use
  Company Number: US-RB-057680-13

PATIENT
  Sex: Male

DRUGS (5)
  1. SUBOXONE TABLET [Suspect]
     Indication: DRUG DEPENDENCE
     Dosage: CUTTING TO ACHIEVE DOSE
     Route: 060
     Dates: start: 2008, end: 2011
  2. SUBOXONE FILM [Suspect]
     Indication: DRUG DEPENDENCE
     Dosage: SUBOXONE FILM; CUTTING TO ACHIEVE DOSE
     Route: 060
     Dates: start: 2011, end: 20110629
  3. SUBOXONE FILM [Suspect]
     Indication: PAIN
     Dosage: SUBOXONE FILM
     Route: 060
     Dates: start: 201307
  4. ANTI-HYPERTENSIVE [Concomitant]
     Indication: HYPERTENSION
     Dosage: DAILY, UNKNOWN UNIT DOSE
     Route: 048
  5. ANTI-CHOLESTEROL MEDICATION [Concomitant]
     Indication: BLOOD CHOLESTEROL INCREASED
     Dosage: DAILY, UNKNOWN DOSE
     Route: 048

REACTIONS (6)
  - Wrong technique in drug usage process [Recovered/Resolved]
  - Rib fracture [Recovered/Resolved]
  - Fall [Recovered/Resolved]
  - Spinal column injury [Recovering/Resolving]
  - Nerve injury [Recovering/Resolving]
  - Off label use [Not Recovered/Not Resolved]
